FAERS Safety Report 9896215 (Version 1)
Quarter: 2014Q1

REPORT INFORMATION
  Report Type: Spontaneous
  Country: US (occurrence: US)
  Receive Date: 20140213
  Receipt Date: 20140213
  Transmission Date: 20141002
  Serious: No
  Sender: FDA-Public Use
  Company Number: US-BRISTOL-MYERS SQUIBB COMPANY-17417742

PATIENT
  Age: 58 Year
  Sex: Female
  Weight: 59.86 kg

DRUGS (9)
  1. ORENCIA [Suspect]
     Indication: RHEUMATOID ARTHRITIS
     Route: 042
     Dates: start: 2010, end: 2010
  2. NORVASC [Concomitant]
  3. MORPHINE SULFATE [Concomitant]
  4. LORTAB [Concomitant]
  5. XANAX [Concomitant]
  6. AMBIEN [Concomitant]
  7. VITAMIN D [Concomitant]
  8. CALCIUM [Concomitant]
  9. FISH OIL [Concomitant]

REACTIONS (1)
  - Rash [Unknown]
